FAERS Safety Report 7267389-X (Version None)
Quarter: 2011Q1

REPORT INFORMATION
  Report Type: 
  Country: None (occurrence: None)
  Receive Date: 20110201
  Receipt Date: 20100909
  Transmission Date: 20110831
  Serious: No
  Sender: FDA-Public Use
  Company Number: A0880944A

PATIENT
  Sex: Female

DRUGS (1)
  1. ARIXTRA [Suspect]
     Dosage: 7.5MG PER DAY
     Route: 042
     Dates: start: 20100101, end: 20100101

REACTIONS (4)
  - SWOLLEN TONGUE [None]
  - PHARYNGEAL OEDEMA [None]
  - DRUG HYPERSENSITIVITY [None]
  - OEDEMA MOUTH [None]
